FAERS Safety Report 7607989-8 (Version None)
Quarter: 2011Q3

REPORT INFORMATION
  Report Type: 
  Country: None (occurrence: None)
  Receive Date: 20110714
  Receipt Date: 20110708
  Transmission Date: 20111222
  Serious: Yes (Other)
  Sender: FDA-Public Use
  Company Number: US-PFIZER INC-2011154554

PATIENT
  Sex: Male
  Weight: 95.692 kg

DRUGS (5)
  1. MS CONTIN [Concomitant]
  2. PRISTIQ [Suspect]
     Indication: MAJOR DEPRESSION
     Dosage: 50 MG, 1X/DAY
     Route: 048
     Dates: start: 20091001
  3. TOPROL-XL [Concomitant]
     Indication: HYPERTENSION
     Dosage: 100 MG, 2X/DAY
  4. MS CONTIN [Concomitant]
     Indication: PAIN
     Dosage: 40 MG, 3X/DAY
  5. MS CONTIN [Concomitant]
     Indication: ARTHRALGIA

REACTIONS (4)
  - BLOOD PRESSURE INCREASED [None]
  - BRADYPHRENIA [None]
  - WEIGHT INCREASED [None]
  - MEMORY IMPAIRMENT [None]
